FAERS Safety Report 11091036 (Version 1)
Quarter: 2015Q2

REPORT INFORMATION
  Report Type: Spontaneous
  Country: SE (occurrence: SE)
  Receive Date: 20150505
  Receipt Date: 20150505
  Transmission Date: 20150821
  Serious: Yes (Hospitalization)
  Sender: FDA-Public Use
  Company Number: SE-TEVA-559494ISR

PATIENT
  Age: 53 Year
  Sex: Male

DRUGS (9)
  1. MIANSERIN [Suspect]
     Active Substance: MIANSERIN
     Indication: SLEEP DISORDER THERAPY
     Dosage: 10 MILLIGRAM DAILY;
     Route: 048
     Dates: start: 201410, end: 201502
  2. MADOPARK [Concomitant]
  3. KLONOPIN 0,5 MG TABLETT [Concomitant]
  4. VENLAFAXINE [Suspect]
     Active Substance: VENLAFAXINE HYDROCHLORIDE
     Dosage: 75 MILLIGRAM DAILY;
     Dates: end: 2013
  5. ZOPICLONE [Concomitant]
     Active Substance: ZOPICLONE
  6. VENLAFAXINE [Suspect]
     Active Substance: VENLAFAXINE HYDROCHLORIDE
     Indication: DEPRESSED MOOD
     Route: 048
     Dates: end: 201502
  7. SINEMET DEPOT MITE 25 MG/100 MG DEPOTTABLETT [Concomitant]
  8. LASIX RETARD 30 MG DEPOTKAPSEL, H?RD [Concomitant]
  9. AZILECT [Suspect]
     Active Substance: RASAGILINE MESYLATE
     Dosage: 1 MILLIGRAM DAILY;
     Route: 048
     Dates: start: 2006, end: 201502

REACTIONS (2)
  - Rapid eye movements sleep abnormal [Recovered/Resolved]
  - Parasomnia [Recovered/Resolved]

NARRATIVE: CASE EVENT DATE: 20150203
